FAERS Safety Report 6291670-4 (Version None)
Quarter: 2009Q3

REPORT INFORMATION
  Report Type: 
  Country: None (occurrence: None)
  Receive Date: 20090730
  Receipt Date: 20090727
  Transmission Date: 20100115
  Serious: Yes (Death)
  Sender: FDA-Public Use
  Company Number: DE-ASTRAZENECA-2009SE05895

PATIENT
  Age: 68 Year
  Sex: Female
  Weight: 53 kg

DRUGS (8)
  1. OMEPRAZOLE [Suspect]
  2. DOMPERIDON [Suspect]
  3. VALPROINSURE [Suspect]
  4. CARBIDOPA [Suspect]
  5. STALEVO 100 [Suspect]
     Dosage: 6X100 MG
  6. PIPAMPERON [Suspect]
  7. CLOZAPINE [Suspect]
     Route: 048
  8. RIVASTIGMIN [Suspect]

REACTIONS (1)
  - SUBILEUS [None]
